APPROVED DRUG PRODUCT: SODIUM NITROPRUSSIDE
Active Ingredient: SODIUM NITROPRUSSIDE
Strength: 10MG/50ML (0.2MG/ML)
Dosage Form/Route: SOLUTION;INTRAVENOUS
Application: A215846 | Product #001
Applicant: SLATE RUN PHARMACEUTICALS LLC
Approved: Aug 26, 2022 | RLD: No | RS: No | Type: RX